FAERS Safety Report 23128642 (Version 2)
Quarter: 2023Q4

REPORT INFORMATION
  Report Type: Spontaneous
  Country: CA (occurrence: CA)
  Receive Date: 20231031
  Receipt Date: 20231127
  Transmission Date: 20240110
  Serious: Yes (Other)
  Sender: FDA-Public Use
  Company Number: CA-OCTA-HAPL04523

PATIENT
  Age: 88 Year
  Sex: Male

DRUGS (1)
  1. ALBUMIN HUMAN [Suspect]
     Active Substance: ALBUMIN HUMAN
     Indication: Cardiac failure congestive
     Route: 042
     Dates: start: 20230111, end: 20230111

REACTIONS (2)
  - Dyspnoea [Recovered/Resolved]
  - Transfusion-related circulatory overload [Recovered/Resolved]

NARRATIVE: CASE EVENT DATE: 20230111
